FAERS Safety Report 4457526-4 (Version None)
Quarter: 2004Q3

REPORT INFORMATION
  Report Type: 
  Country: None (occurrence: None)
  Receive Date: 20040921
  Receipt Date: 20020906
  Transmission Date: 20050211
  Serious: Yes (Hospitalization)
  Sender: FDA-Public Use
  Company Number: A0138231A

PATIENT
  Age: 64 Year
  Sex: Male
  Weight: 172.5 kg

DRUGS (8)
  1. EPIVIR-HBV [Suspect]
     Indication: HEPATITIS B
     Dosage: 100 MG/ PER DAY/ ORAL
     Route: 048
     Dates: start: 19961029, end: 20011107
  2. MYCOPHENOLATE MOFETIL [Concomitant]
  3. LISINOPRIL [Concomitant]
  4. REPAGLINIDE [Concomitant]
  5. FRUSEMIDE [Concomitant]
  6. DIPHENHYDRAMINE HCL [Concomitant]
  7. EXTRA STRENGTH TYLENOL [Concomitant]
  8. GANCICLOVIR [Concomitant]

REACTIONS (2)
  - RENAL FAILURE [None]
  - RENAL FAILURE ACUTE [None]
